FAERS Safety Report 5777599-6 (Version None)
Quarter: 2008Q2

REPORT INFORMATION
  Report Type: 
  Country: None (occurrence: None)
  Receive Date: 20080618
  Receipt Date: 20080605
  Transmission Date: 20081010
  Serious: Yes (Other)
  Sender: FDA-Public Use
  Company Number: US-BAYER-200811717BCC

PATIENT
  Age: 56 Year
  Sex: Male
  Weight: 123 kg

DRUGS (9)
  1. ASPIRIN [Suspect]
     Indication: ISCHAEMIC HEART DISEASE PROPHYLAXIS
     Dosage: TOTAL DAILY DOSE: 81 MG  UNIT DOSE: 81 MG
     Route: 048
  2. ASPIRIN [Suspect]
     Indication: ATRIAL FIBRILLATION
     Dosage: TOTAL DAILY DOSE: 325 MG  UNIT DOSE: 325 MG
     Route: 048
     Dates: start: 20070819
  3. CLONIDINE [Concomitant]
  4. LISINOPRIL [Concomitant]
  5. METOPROLOL [Concomitant]
  6. SPIRONOLACTONE [Concomitant]
  7. DOXYCYCLINE [Concomitant]
     Dosage: TOTAL DAILY DOSE: 200 MG  UNIT DOSE: 100 MG
     Route: 048
     Dates: start: 20080303
  8. CLONIDINE HYDROCHLORIDE [Concomitant]
     Dosage: TOTAL DAILY DOSE: 0.4 MG  UNIT DOSE: 0.2 MG
     Route: 048
  9. METROGEL [Concomitant]
     Route: 061

REACTIONS (3)
  - ATRIAL FIBRILLATION [None]
  - CONSTIPATION [None]
  - MEDICATION RESIDUE [None]
